FAERS Safety Report 5216743-6 (Version None)
Quarter: 2007Q1

REPORT INFORMATION
  Report Type: 
  Country: None (occurrence: None)
  Receive Date: 20070118
  Receipt Date: 20070111
  Transmission Date: 20070707
  Serious: Yes (Death, Hospitalization)
  Sender: FDA-Public Use
  Company Number: 2006SP007167

PATIENT
  Age: 30 Year
  Sex: Male
  Weight: 45 kg

DRUGS (5)
  1. PEGATRON (PEGYLATED INTERFERON ALFA-2B W/RIBAVIRIN) [Suspect]
     Indication: HEPATITIS C
     Dosage: 100 MCG; QW; SC; SEE IMAGE
     Route: 058
     Dates: start: 20060501, end: 20061031
  2. PEGATRON (PEGYLATED INTERFERON ALFA-2B W/RIBAVIRIN) [Suspect]
     Indication: HEPATITIS C
     Dosage: 100 MCG; QW; SC; SEE IMAGE
     Route: 058
     Dates: start: 20060501, end: 20061031
  3. OROXINE [Concomitant]
  4. CARVEDILOL [Concomitant]
  5. TESTOSTERONE [Concomitant]

REACTIONS (5)
  - CARDIAC FAILURE [None]
  - CONGESTIVE CARDIOMYOPATHY [None]
  - DISEASE PROGRESSION [None]
  - LEFT VENTRICULAR FAILURE [None]
  - LOWER RESPIRATORY TRACT INFECTION [None]
